FAERS Safety Report 5870720-0 (Version None)
Quarter: 2008Q3

REPORT INFORMATION
  Report Type: 
  Country: None (occurrence: None)
  Receive Date: 20080904
  Receipt Date: 20080826
  Transmission Date: 20090109
  Serious: Yes (Other)
  Sender: FDA-Public Use
  Company Number: PHHY2008JP13634

PATIENT
  Age: 32 Year
  Sex: Male

DRUGS (2)
  1. VOLTAREN [Suspect]
     Indication: ORCHITIS
     Dosage: 50 MG
     Route: 054
     Dates: start: 20080627
  2. FAROM [Suspect]
     Dosage: 600 MG
     Route: 048
     Dates: start: 20080627, end: 20080630

REACTIONS (3)
  - BLOOD CREATINE PHOSPHOKINASE INCREASED [None]
  - INFECTION [None]
  - RHABDOMYOLYSIS [None]
